FAERS Safety Report 11215167 (Version 1)
Quarter: 2015Q2

REPORT INFORMATION
  Report Type: Other
  Country: BR (occurrence: BR)
  Receive Date: 20150624
  Receipt Date: 20150624
  Transmission Date: 20150821
  Serious: Yes (Hospitalization)
  Sender: FDA-Public Use
  Company Number: BR-ENDO PHARMACEUTICALS INC-2015-001445

PATIENT
  Age: 64 Year
  Sex: Female

DRUGS (1)
  1. DOXYCYCLINE HYCLATE 100MG [Suspect]
     Active Substance: DOXYCYCLINE HYCLATE
     Indication: ERYSIPELAS
     Route: 065

REACTIONS (2)
  - Dermatitis atopic [Recovering/Resolving]
  - Drug eruption [Recovering/Resolving]
